FAERS Safety Report 7163923-9 (Version None)
Quarter: 2010Q4

REPORT INFORMATION
  Report Type: 
  Country: None (occurrence: None)
  Receive Date: 20101210
  Receipt Date: 20101210
  Transmission Date: 20110411
  Serious: Yes (Hospitalization)
  Sender: FDA-Public Use
  Company Number: None

PATIENT
  Sex: Male
  Weight: 61.1 kg

DRUGS (2)
  1. CISPLATIN [Suspect]
     Dosage: 87.5 MG
     Dates: end: 20101110
  2. ETOPOSIDE [Suspect]
     Dosage: 393 MG
     Dates: end: 20101112

REACTIONS (4)
  - FATIGUE [None]
  - HYPOTENSION [None]
  - MUSCULAR WEAKNESS [None]
  - PNEUMONIA [None]
